FAERS Safety Report 20379960 (Version 1)
Quarter: 2022Q1

REPORT INFORMATION
  Report Type: Spontaneous
  Country: IE (occurrence: IE)
  Receive Date: 20220126
  Receipt Date: 20220126
  Transmission Date: 20220423
  Serious: Yes (Death)
  Sender: FDA-Public Use
  Company Number: IE-PFIZER INC-202200053501

PATIENT
  Age: 6 Day
  Sex: Female

DRUGS (1)
  1. GENOTROPIN [Suspect]
     Active Substance: SOMATROPIN
     Indication: Blood glucose decreased
     Dosage: 0.1 MG, DAILY
     Dates: start: 20220106

REACTIONS (2)
  - Death neonatal [Fatal]
  - Off label use [Unknown]

NARRATIVE: CASE EVENT DATE: 20220101
